FAERS Safety Report 4286636-X (Version None)
Quarter: 2004Q1

REPORT INFORMATION
  Report Type: 
  Country: None (occurrence: None)
  Receive Date: 20040204
  Receipt Date: 20040123
  Transmission Date: 20041129
  Serious: Yes (Hospitalization)
  Sender: FDA-Public Use
  Company Number: 2004PK00169

PATIENT
  Age: 53 Year
  Sex: Female

DRUGS (6)
  1. SEROQUEL [Suspect]
     Dosage: 400-475 MG/D
     Dates: start: 20021129
  2. TEGRETOL [Suspect]
     Dosage: 200-800 MG/D
     Dates: start: 20030925
  3. SEROPRAM [Suspect]
     Dosage: 60 MG DAILY PO
     Route: 048
     Dates: start: 20021201
  4. THYROID TAB [Suspect]
     Dosage: 0.1 MG DAILY
     Dates: start: 20021201
  5. TOLVON [Suspect]
     Dosage: 90 MG DAILY
     Dates: start: 20030801
  6. CYCLO-PREMELLA [Suspect]
     Dosage: 0.625 MG DAILY
     Dates: start: 20031001, end: 20031214

REACTIONS (7)
  - ARTHRALGIA [None]
  - COUGH [None]
  - DOUBLE STRANDED DNA ANTIBODY [None]
  - LUPUS-LIKE SYNDROME [None]
  - MOBILITY DECREASED [None]
  - MYALGIA [None]
  - OEDEMA PERIPHERAL [None]
